FAERS Safety Report 19820460 (Version 1)
Quarter: 2021Q3

REPORT INFORMATION
  Report Type: Spontaneous
  Country: US (occurrence: US)
  Receive Date: 20210913
  Receipt Date: 20210913
  Transmission Date: 20211014
  Serious: No
  Sender: FDA-Public Use
  Company Number: US-ALNYLAM PHARMACEUTICALS, INC.-ALN-2021-002180

PATIENT

DRUGS (1)
  1. ONPATTRO [Suspect]
     Active Substance: PATISIRAN SODIUM
     Indication: AMYLOIDOSIS SENILE
     Dosage: UNK
     Route: 042
     Dates: start: 20180901

REACTIONS (3)
  - Arthralgia [Unknown]
  - Joint injury [Unknown]
  - Nerve compression [Unknown]

NARRATIVE: CASE EVENT DATE: 20210901
